FAERS Safety Report 18207057 (Version 1)
Quarter: 2020Q3

REPORT INFORMATION
  Report Type: Spontaneous
  Country: US (occurrence: US)
  Receive Date: 20200828
  Receipt Date: 20200828
  Transmission Date: 20201103
  Serious: No
  Sender: FDA-Public Use
  Company Number: US-3M-2020-US-014293

PATIENT
  Age: 78 Year
  Sex: Male

DRUGS (3)
  1. UNSPECIFIED MEDICATION [Concomitant]
     Active Substance: UNSPECIFIED INGREDIENT
     Route: 065
  2. PERIDEX [Suspect]
     Active Substance: CHLORHEXIDINE GLUCONATE
     Indication: PRODUCT USED FOR UNKNOWN INDICATION
     Dosage: INSTRUCTED TO USE FOR 3 DAYS, BUT PATIENT USED IT DAIILY FOR 7?8 DAYS
     Route: 048
     Dates: start: 20200630, end: 20200707
  3. BEEF LIVER ^PILLS^ [DIETARY SUPPLEMENT] [Suspect]
     Active Substance: DIETARY SUPPLEMENT
     Dosage: 6 ^PILLS^ DAILY
     Route: 065

REACTIONS (3)
  - Tongue discolouration [Recovered/Resolved]
  - Intentional product misuse [Recovered/Resolved]
  - Tooth discolouration [Recovered/Resolved]

NARRATIVE: CASE EVENT DATE: 20200630
